FAERS Safety Report 8603186 (Version 2)
Quarter: 2014Q3

REPORT INFORMATION
  Report Type: Spontaneous
  Country: US (occurrence: US)
  Receive Date: 20120607
  Receipt Date: 20140702
  Transmission Date: 20150326
  Serious: Yes (Hospitalization)
  Sender: FDA-Public Use
  Company Number: US-GLAXOSMITHKLINE-A0886567A

PATIENT
  Sex: Male

DRUGS (1)
  1. AVANDIA [Suspect]
     Active Substance: ROSIGLITAZONE MALEATE
     Indication: DIABETES MELLITUS
     Dosage: 8MG PER DAY
     Route: 048
     Dates: start: 200307, end: 200806

REACTIONS (8)
  - Coronary artery disease [Unknown]
  - Cardiac failure congestive [Not Recovered/Not Resolved]
  - Ischaemic neuropathy [Unknown]
  - Aneurysm [Unknown]
  - Pleural effusion [Unknown]
  - Ischaemic cardiomyopathy [Unknown]
  - Mitral valve incompetence [Unknown]
  - Renal failure acute [Unknown]
